FAERS Safety Report 9263899 (Version 2)
Quarter: 2013Q2

REPORT INFORMATION
  Report Type: Report from Study
  Country: US (occurrence: US)
  Receive Date: 20130430
  Receipt Date: 20130522
  Transmission Date: 20140414
  Serious: Yes (Hospitalization, Other)
  Sender: FDA-Public Use
  Company Number: US-GENZYME-CAMP-1002888

PATIENT
  Age: 62 Year
  Sex: Female
  Weight: 56 kg

DRUGS (19)
  1. CAMPATH [Suspect]
     Indication: CHRONIC GRAFT VERSUS HOST DISEASE
     Dosage: 3 MG (DAY 1 OF WEEK 1)
     Route: 042
     Dates: start: 20100510
  2. CAMPATH [Suspect]
     Dosage: 10 MG (DAY 3 OF WEEK 1)
     Route: 042
  3. CAMPATH [Suspect]
     Dosage: 30 MG, (DAY 5 OF WEEK 1)
     Route: 042
  4. CAMPATH [Suspect]
     Dosage: 30 MG, 1X/W (FOR 3 WEEKS)
     Route: 042
     Dates: end: 20100531
  5. CALCINEURIN INHIBITORS [Concomitant]
     Indication: CHRONIC GRAFT VERSUS HOST DISEASE
     Dosage: UNK
     Route: 065
  6. PREDNISONE [Concomitant]
     Indication: CHRONIC GRAFT VERSUS HOST DISEASE
     Dosage: 15 MG (0.27 MG/KG), UNK
     Route: 065
  7. PREDNISONE [Concomitant]
     Dosage: 12.5 MG, UNK
  8. THALIDOMIDE [Concomitant]
     Indication: CHRONIC GRAFT VERSUS HOST DISEASE
     Dosage: UNK
     Route: 065
  9. DIPHENHYDRAMINE [Concomitant]
     Indication: PREMEDICATION
     Dosage: UNK
     Route: 065
  10. ACETAMINOPHEN [Concomitant]
     Indication: PREMEDICATION
     Dosage: UNK
     Route: 065
  11. ANTIMICROBIALS [Concomitant]
     Indication: PROPHYLAXIS
     Dosage: UNK
     Route: 065
  12. ANTIFUNGALS [Concomitant]
     Indication: PROPHYLAXIS
     Dosage: UNK
     Route: 065
  13. GANCICLOVIR [Concomitant]
     Indication: THERAPEUTIC PROCEDURE
     Dosage: UNK
     Route: 065
  14. DASATINIB [Concomitant]
     Indication: PRODUCT USED FOR UNKNOWN INDICATION
     Dosage: UNK
     Route: 065
  15. NILOTINIB [Concomitant]
     Indication: PRODUCT USED FOR UNKNOWN INDICATION
     Dosage: UNK
     Route: 065
  16. PUVA [Concomitant]
     Indication: PRODUCT USED FOR UNKNOWN INDICATION
     Dosage: UNK
     Route: 065
  17. RITUXIMAB [Concomitant]
     Indication: PRODUCT USED FOR UNKNOWN INDICATION
     Dosage: UNK
     Route: 065
  18. G-CSF [Concomitant]
     Indication: NEUTROPENIA
     Dosage: UNK
     Route: 065
  19. TACROLIMUS [Concomitant]
     Indication: PRODUCT USED FOR UNKNOWN INDICATION

REACTIONS (4)
  - Thrombotic microangiopathy [Recovered/Resolved]
  - Parainfluenzae virus infection [Recovered/Resolved]
  - Neutropenia [Recovered/Resolved]
  - Cytomegalovirus infection [Recovered/Resolved]
